FAERS Safety Report 8531580-2 (Version None)
Quarter: 2012Q2

REPORT INFORMATION
  Report Type: 
  Country: None (occurrence: None)
  Receive Date: 20120412
  Receipt Date: 20100809
  Transmission Date: 20120825
  Serious: Yes (Other)
  Sender: FDA-Public Use
  Company Number: PHHY2010US52897

PATIENT
  Age: 30 Year
  Sex: Male

DRUGS (4)
  1. HALDOL [Concomitant]
  2. CLOZARIL [Suspect]
     Dosage: 625;500 MG/DAY
  3. COGENTIN [Concomitant]
  4. LITHIUM CARBONATE [Concomitant]

REACTIONS (1)
  - ANTIPSYCHOTIC DRUG LEVEL INCREASED [None]
